FAERS Safety Report 11491045 (Version 2)
Quarter: 2016Q3

REPORT INFORMATION
  Report Type: Spontaneous
  Country: US (occurrence: US)
  Receive Date: 20150910
  Receipt Date: 20160907
  Transmission Date: 20161109
  Serious: Yes (Other)
  Sender: FDA-Public Use
  Company Number: US-JNJFOC-20150810361

PATIENT
  Sex: Female
  Weight: 99.79 kg

DRUGS (44)
  1. LEVAQUIN [Suspect]
     Active Substance: LEVOFLOXACIN
     Indication: DIVERTICULITIS
     Route: 048
     Dates: start: 20070102, end: 20070109
  2. LEVAQUIN [Suspect]
     Active Substance: LEVOFLOXACIN
     Indication: CARDIAC OPERATION
     Route: 048
     Dates: start: 20070328, end: 20070403
  3. LEVAQUIN [Suspect]
     Active Substance: LEVOFLOXACIN
     Indication: CARDIAC OPERATION
     Route: 048
     Dates: start: 20060420, end: 20060427
  4. LEVAQUIN [Suspect]
     Active Substance: LEVOFLOXACIN
     Indication: CARDIAC OPERATION
     Route: 048
     Dates: start: 20050224, end: 20060303
  5. LEVAQUIN [Suspect]
     Active Substance: LEVOFLOXACIN
     Indication: CARDIAC OPERATION
     Route: 048
     Dates: start: 20010219, end: 20010228
  6. LEVAQUIN [Suspect]
     Active Substance: LEVOFLOXACIN
     Indication: SINUSITIS
     Route: 048
     Dates: start: 20070328, end: 20070403
  7. CIPROFLOXACIN. [Suspect]
     Active Substance: CIPROFLOXACIN
     Indication: SINUSITIS
     Route: 048
     Dates: start: 20050721, end: 20050804
  8. QUIXIN [Suspect]
     Active Substance: LEVOFLOXACIN
     Indication: CONJUNCTIVITIS
     Route: 005
     Dates: start: 2002, end: 2003
  9. LEVAQUIN [Suspect]
     Active Substance: LEVOFLOXACIN
     Indication: DIVERTICULITIS
     Route: 048
     Dates: start: 20070220, end: 20070224
  10. LEVAQUIN [Suspect]
     Active Substance: LEVOFLOXACIN
     Indication: DIVERTICULITIS
     Route: 048
     Dates: start: 20020226, end: 20020312
  11. LEVAQUIN [Suspect]
     Active Substance: LEVOFLOXACIN
     Indication: DIVERTICULITIS
     Route: 048
     Dates: start: 20050224, end: 20060303
  12. LEVAQUIN [Suspect]
     Active Substance: LEVOFLOXACIN
     Indication: DIVERTICULITIS
     Route: 048
     Dates: start: 20070511, end: 20070518
  13. LEVAQUIN [Suspect]
     Active Substance: LEVOFLOXACIN
     Indication: CARDIAC OPERATION
     Route: 048
     Dates: start: 20020226, end: 20020312
  14. LEVAQUIN [Suspect]
     Active Substance: LEVOFLOXACIN
     Indication: SINUSITIS
     Route: 048
     Dates: start: 20070220, end: 20070224
  15. LEVAQUIN [Suspect]
     Active Substance: LEVOFLOXACIN
     Indication: CARDIAC OPERATION
     Route: 042
     Dates: start: 200605
  16. LEVAQUIN [Suspect]
     Active Substance: LEVOFLOXACIN
     Indication: CARDIAC OPERATION
     Route: 048
     Dates: start: 20080330, end: 20080409
  17. LEVAQUIN [Suspect]
     Active Substance: LEVOFLOXACIN
     Indication: CARDIAC OPERATION
     Route: 048
     Dates: start: 20020120, end: 20020129
  18. LEVAQUIN [Suspect]
     Active Substance: LEVOFLOXACIN
     Indication: SINUSITIS
     Route: 048
     Dates: start: 20070102, end: 20070109
  19. LEVAQUIN [Suspect]
     Active Substance: LEVOFLOXACIN
     Indication: SINUSITIS
     Dosage: 7 DAY COURSE
     Route: 048
     Dates: start: 20010123, end: 20010307
  20. LEVAQUIN [Suspect]
     Active Substance: LEVOFLOXACIN
     Indication: CARDIAC OPERATION
     Dosage: 7 DAY COURSE
     Route: 048
     Dates: start: 20060512, end: 20060518
  21. LEVAQUIN [Suspect]
     Active Substance: LEVOFLOXACIN
     Indication: SINUSITIS
     Dosage: 7 DAY COURSE
     Route: 048
     Dates: start: 20060512, end: 20060518
  22. LEVAQUIN [Suspect]
     Active Substance: LEVOFLOXACIN
     Indication: SINUSITIS
     Route: 048
     Dates: start: 20060420, end: 20060427
  23. LEVAQUIN [Suspect]
     Active Substance: LEVOFLOXACIN
     Indication: SINUSITIS
     Route: 048
     Dates: start: 20010219, end: 20010228
  24. LEVAQUIN [Suspect]
     Active Substance: LEVOFLOXACIN
     Indication: SINUSITIS
     Route: 042
     Dates: start: 20070213, end: 20070220
  25. LEVAQUIN [Suspect]
     Active Substance: LEVOFLOXACIN
     Indication: SINUSITIS
     Route: 042
     Dates: start: 200605
  26. LEVAQUIN [Suspect]
     Active Substance: LEVOFLOXACIN
     Indication: DIVERTICULITIS
     Route: 048
     Dates: start: 20080330, end: 20080409
  27. LEVAQUIN [Suspect]
     Active Substance: LEVOFLOXACIN
     Indication: CARDIAC OPERATION
     Dosage: 7 DAY COURSE
     Route: 048
     Dates: start: 20010123, end: 20010307
  28. LEVAQUIN [Suspect]
     Active Substance: LEVOFLOXACIN
     Indication: SINUSITIS
     Route: 048
     Dates: start: 20080330, end: 20080409
  29. LEVAQUIN [Suspect]
     Active Substance: LEVOFLOXACIN
     Indication: SINUSITIS
     Route: 048
     Dates: start: 20050224, end: 20060303
  30. CIPROFLOXACIN. [Suspect]
     Active Substance: CIPROFLOXACIN
     Indication: BRONCHITIS
     Route: 048
     Dates: start: 20050721, end: 20050804
  31. LEVAQUIN [Suspect]
     Active Substance: LEVOFLOXACIN
     Indication: DIVERTICULITIS
     Dosage: 7 DAY COURSE
     Route: 048
     Dates: start: 20010123, end: 20010307
  32. LEVAQUIN [Suspect]
     Active Substance: LEVOFLOXACIN
     Indication: DIVERTICULITIS
     Route: 048
     Dates: start: 20020120, end: 20020129
  33. LEVAQUIN [Suspect]
     Active Substance: LEVOFLOXACIN
     Indication: DIVERTICULITIS
     Route: 048
     Dates: start: 20060420, end: 20060427
  34. LEVAQUIN [Suspect]
     Active Substance: LEVOFLOXACIN
     Indication: CARDIAC OPERATION
     Route: 048
     Dates: start: 20070220, end: 20070224
  35. LEVAQUIN [Suspect]
     Active Substance: LEVOFLOXACIN
     Indication: CARDIAC OPERATION
     Route: 048
     Dates: start: 20070511, end: 20070518
  36. LEVAQUIN [Suspect]
     Active Substance: LEVOFLOXACIN
     Indication: SINUSITIS
     Route: 048
     Dates: start: 20070511, end: 20070518
  37. LEVAQUIN [Suspect]
     Active Substance: LEVOFLOXACIN
     Indication: SINUSITIS
     Route: 048
     Dates: start: 20020226, end: 20020312
  38. AVELOX [Suspect]
     Active Substance: MOXIFLOXACIN HYDROCHLORIDE
     Indication: SINUSITIS
     Route: 048
     Dates: start: 20071018, end: 20071027
  39. LEVAQUIN [Suspect]
     Active Substance: LEVOFLOXACIN
     Indication: DIVERTICULITIS
     Route: 048
     Dates: start: 20070328, end: 20070403
  40. LEVAQUIN [Suspect]
     Active Substance: LEVOFLOXACIN
     Indication: DIVERTICULITIS
     Route: 048
     Dates: start: 20010219, end: 20010228
  41. LEVAQUIN [Suspect]
     Active Substance: LEVOFLOXACIN
     Indication: DIVERTICULITIS
     Dosage: 7 DAY COURSE
     Route: 048
     Dates: start: 20060512, end: 20060518
  42. LEVAQUIN [Suspect]
     Active Substance: LEVOFLOXACIN
     Indication: CARDIAC OPERATION
     Route: 048
     Dates: start: 20070102, end: 20070109
  43. LEVAQUIN [Suspect]
     Active Substance: LEVOFLOXACIN
     Indication: SINUSITIS
     Route: 048
     Dates: start: 20020120, end: 20020129
  44. LEVAQUIN [Suspect]
     Active Substance: LEVOFLOXACIN
     Indication: CARDIAC OPERATION
     Route: 042
     Dates: start: 20070213, end: 20070220

REACTIONS (3)
  - Cognitive disorder [Unknown]
  - Neuropathy peripheral [Not Recovered/Not Resolved]
  - Memory impairment [Unknown]

NARRATIVE: CASE EVENT DATE: 2001
